FAERS Safety Report 13721971 (Version 1)
Quarter: 2017Q3

REPORT INFORMATION
  Report Type: Spontaneous
  Country: US (occurrence: US)
  Receive Date: 20170706
  Receipt Date: 20170706
  Transmission Date: 20171127
  Serious: No
  Sender: FDA-Public Use
  Company Number: US-PFIZER INC-2017281884

PATIENT
  Sex: Female

DRUGS (1)
  1. XELJANZ XR [Suspect]
     Active Substance: TOFACITINIB CITRATE
     Dosage: 11 MG, UNK

REACTIONS (18)
  - Joint range of motion decreased [Unknown]
  - Dry mouth [Unknown]
  - Headache [Unknown]
  - Condition aggravated [Unknown]
  - Joint crepitation [Unknown]
  - Weight increased [Unknown]
  - Dyspepsia [Unknown]
  - Eye pruritus [Unknown]
  - Night sweats [Unknown]
  - Myalgia [Unknown]
  - Arthralgia [Unknown]
  - Peripheral swelling [Unknown]
  - Sleep disorder [Unknown]
  - Joint swelling [Unknown]
  - Pruritus [Unknown]
  - Musculoskeletal stiffness [Unknown]
  - Fatigue [Unknown]
  - Lymphadenopathy [Unknown]
